FAERS Safety Report 13612914 (Version 2)
Quarter: 2017Q2

REPORT INFORMATION
  Report Type: Spontaneous
  Country: US (occurrence: US)
  Receive Date: 20170605
  Receipt Date: 20170630
  Transmission Date: 20170830
  Serious: No
  Sender: FDA-Public Use
  Company Number: US-SUNOVION-2017SUN002273

PATIENT

DRUGS (6)
  1. ABILIFY [Suspect]
     Active Substance: ARIPIPRAZOLE
     Dosage: UNK
  2. LATUDA [Suspect]
     Active Substance: LURASIDONE HYDROCHLORIDE
     Dosage: 160 MG, QD
     Route: 048
  3. HALDOL [Suspect]
     Active Substance: HALOPERIDOL
     Dosage: 30 MG, QD
  4. FANAPT [Suspect]
     Active Substance: ILOPERIDONE
  5. RISPERIDONE. [Suspect]
     Active Substance: RISPERIDONE
  6. INVEGA [Suspect]
     Active Substance: PALIPERIDONE
     Dosage: UNK

REACTIONS (2)
  - Hallucination, auditory [Not Recovered/Not Resolved]
  - Emotional distress [Unknown]
